FAERS Safety Report 18723066 (Version 1)
Quarter: 2021Q1

REPORT INFORMATION
  Report Type: Spontaneous
  Country: US (occurrence: US)
  Receive Date: 20210111
  Receipt Date: 20210111
  Transmission Date: 20210419
  Serious: No
  Sender: FDA-Public Use
  Company Number: US-ENCUBE-000032

PATIENT
  Sex: Male

DRUGS (1)
  1. DICLOFENAC SODIUM TOPICAL GEL 1% [Suspect]
     Active Substance: DICLOFENAC SODIUM
     Indication: PRODUCT USED FOR UNKNOWN INDICATION
     Dosage: 1.00%
     Route: 048

REACTIONS (3)
  - Incorrect route of product administration [Unknown]
  - Accidental exposure to product [Unknown]
  - Throat irritation [Recovered/Resolved]
